FAERS Safety Report 6612475-8 (Version None)
Quarter: 2010Q1

REPORT INFORMATION
  Report Type: 
  Country: None (occurrence: None)
  Receive Date: 20100223
  Receipt Date: 20100218
  Transmission Date: 20100710
  Serious: Yes (Death, Other)
  Sender: FDA-Public Use
  Company Number: 2010SP010238

PATIENT
  Age: 75 Year
  Sex: Male
  Weight: 80 kg

DRUGS (3)
  1. TEMODAL [Suspect]
     Indication: GLIOBLASTOMA MULTIFORME
     Dosage: 75 MG/M2;QD/PO
     Route: 048
     Dates: start: 20061017, end: 20081128
  2. PHENYTOIN [Suspect]
     Indication: PROPHYLAXIS
     Dosage: PO
     Dates: start: 20060922
  3. TANATRIL [Concomitant]

REACTIONS (4)
  - CONDITION AGGRAVATED [None]
  - DISEASE PROGRESSION [None]
  - HEPATIC CIRRHOSIS [None]
  - HEPATITIS B [None]
